FAERS Safety Report 8534166-9 (Version None)
Quarter: 2012Q3

REPORT INFORMATION
  Report Type: 
  Country: None (occurrence: None)
  Receive Date: 20120724
  Receipt Date: 20120713
  Transmission Date: 20120928
  Serious: Yes (Hospitalization)
  Sender: FDA-Public Use
  Company Number: US-ACTELION-A-US2012-67591

PATIENT

DRUGS (4)
  1. PLAVIX [Concomitant]
  2. COUMADIN [Concomitant]
  3. ASPIRIN [Concomitant]
  4. EPOPROSTENOL SODIUM [Suspect]
     Indication: PULMONARY ARTERIAL HYPERTENSION
     Dosage: 44 NG/KG, PER MIN
     Route: 042
     Dates: start: 20101208

REACTIONS (4)
  - HAEMOGLOBIN DECREASED [None]
  - HAEMATOCHEZIA [None]
  - LETHARGY [None]
  - TRANSFUSION [None]
